FAERS Safety Report 17350175 (Version 2)
Quarter: 2020Q2

REPORT INFORMATION
  Report Type: Spontaneous
  Country: US (occurrence: US)
  Receive Date: 20200130
  Receipt Date: 20200409
  Transmission Date: 20200713
  Serious: No
  Sender: FDA-Public Use
  Company Number: US-BIOGEN-2020BI00832503

PATIENT
  Age: 47 Year
  Sex: Female

DRUGS (2)
  1. TYSABRI [Suspect]
     Active Substance: NATALIZUMAB
     Indication: MULTIPLE SCLEROSIS
     Dosage: INFUSED OVER ONE HOUR
     Route: 042
  2. TYSABRI [Suspect]
     Active Substance: NATALIZUMAB
     Route: 065
     Dates: start: 20171208

REACTIONS (2)
  - Product dose omission [Unknown]
  - Memory impairment [Unknown]

NARRATIVE: CASE EVENT DATE: 201909
